FAERS Safety Report 13807436 (Version 3)
Quarter: 2017Q4

REPORT INFORMATION
  Report Type: Spontaneous
  Country: US (occurrence: US)
  Receive Date: 20170728
  Receipt Date: 20171027
  Transmission Date: 20180320
  Serious: Yes (Other)
  Sender: FDA-Public Use
  Company Number: US-VIFOR (INTERNATIONAL) INC.-VIT-2017-08006

PATIENT
  Age: 77 Year
  Sex: Male
  Weight: 62.2 kg

DRUGS (2)
  1. VELTASSA [Suspect]
     Active Substance: PATIROMER
     Indication: HYPERKALAEMIA
     Route: 048
     Dates: start: 20170302, end: 2017
  2. VELTASSA [Suspect]
     Active Substance: PATIROMER
     Indication: BLOOD PHOSPHORUS INCREASED

REACTIONS (2)
  - Acute kidney injury [Recovering/Resolving]
  - Malaise [Recovering/Resolving]

NARRATIVE: CASE EVENT DATE: 201704
